FAERS Safety Report 7709269-9 (Version None)
Quarter: 2011Q3

REPORT INFORMATION
  Report Type: 
  Country: None (occurrence: None)
  Receive Date: 20110825
  Receipt Date: 20110823
  Transmission Date: 20111222
  Serious: Yes (Death, Hospitalization)
  Sender: FDA-Public Use
  Company Number: PHEH2009US16450

PATIENT
  Sex: Female
  Weight: 61.46 kg

DRUGS (4)
  1. EXJADE [Suspect]
     Dosage: 1500 MG, DAILY
     Route: 048
     Dates: start: 20110331
  2. IMMUNOSUPPRESSANTS [Concomitant]
     Indication: MYELODYSPLASTIC SYNDROME
  3. EXJADE [Suspect]
     Indication: MYELODYSPLASTIC SYNDROME
     Dosage: 1500 MG, DAILY
     Route: 048
  4. ANTINEOPLASTIC AGENTS [Concomitant]

REACTIONS (7)
  - DEATH [None]
  - RESPIRATORY RATE DECREASED [None]
  - PNEUMONIA [None]
  - BLOOD PRESSURE DECREASED [None]
  - HEART RATE DECREASED [None]
  - PYREXIA [None]
  - FEELING ABNORMAL [None]
